FAERS Safety Report 8304136-4 (Version None)
Quarter: 2012Q1

REPORT INFORMATION
  Report Type: 
  Country: None (occurrence: None)
  Receive Date: 20120326
  Receipt Date: 20110613
  Transmission Date: 20120608
  Serious: Yes (Other)
  Sender: FDA-Public Use
  Company Number: PHHY2011US26478

PATIENT
  Age: 62 Year
  Sex: Female

DRUGS (20)
  1. CYCLOBENZAPRINE HYDROCHLORIDE [Concomitant]
  2. GUAIFENESIN [Concomitant]
  3. LYRICA [Concomitant]
  4. METOCLOPRAMIDE HYDROCHLORIDE [Concomitant]
  5. DEPO-TESTOSTERONE [Concomitant]
  6. EFFEXOR XR [Concomitant]
  7. PSEUDOCHLORPHONE [Concomitant]
  8. ZYDONE (HYDROCODONE BITARTRATE, PARACETAMOL) [Concomitant]
  9. PANTOPRAZOLE SODIUM [Concomitant]
  10. TEMAZEPAM [Concomitant]
  11. VENLAFAXINE HCL [Concomitant]
  12. DEPO-MEDROL [Concomitant]
  13. CARVEDILOL [Concomitant]
  14. MAGIC MOUTHWASH (DIPHENHYDRAMINE HYDROCHLORIDE, HYDROCORTISONE, NYSTAT [Concomitant]
  15. CARISOPRODOL (CARISOPRODOL) [Concomitant]
  16. PROVIGIL [Concomitant]
  17. DEPO-ESTRADIOL CYPIONATE (ESTRADIOL CIPIONATE) [Concomitant]
  18. MILNACIPRAN HYDROCHLORIDE (MILNACIPRAN HYDROCHLORIDE) [Concomitant]
  19. TASIGNA [Suspect]
     Dosage: 2 TABS IN AM, 2 TABS IN PM, ORAL
     Route: 048
     Dates: start: 20110126
  20. CLONAZEPAM [Concomitant]

REACTIONS (4)
  - LIMB INJURY [None]
  - CRYING [None]
  - DEPRESSION [None]
  - FALL [None]
